FAERS Safety Report 23509928 (Version 1)
Quarter: 2024Q1

REPORT INFORMATION
  Report Type: Report from Study
  Country: US (occurrence: US)
  Receive Date: 20240211
  Receipt Date: 20240211
  Transmission Date: 20240410
  Serious: Yes (Other)
  Sender: FDA-Public Use
  Company Number: US-drreddys-CLI/USA/23/0188038

PATIENT
  Age: 20 Year
  Sex: Female

DRUGS (2)
  1. ZENATANE [Suspect]
     Active Substance: ISOTRETINOIN
     Indication: Acne
     Dates: start: 20230414, end: 20231205
  2. ZENATANE [Suspect]
     Active Substance: ISOTRETINOIN
     Dates: start: 20210526

REACTIONS (1)
  - Exposure during pregnancy [Unknown]
